FAERS Safety Report 8835040 (Version 1)
Quarter: 2012Q4

REPORT INFORMATION
  Report Type: Report from Study
  Country: CA (occurrence: CA)
  Receive Date: 20121011
  Receipt Date: 20121011
  Transmission Date: 20130627
  Serious: Yes (Hospitalization)
  Sender: FDA-Public Use
  Company Number: CA-JNJFOC-20121001347

PATIENT
  Age: 42 Year
  Sex: Female
  Weight: 92.7 kg

DRUGS (17)
  1. REMICADE [Suspect]
     Indication: CROHN^S DISEASE
     Route: 042
     Dates: start: 20120426
  2. REMICADE [Suspect]
     Indication: CROHN^S DISEASE
     Route: 042
     Dates: start: 201207
  3. VITAMIN D [Concomitant]
     Route: 065
  4. ZOPICLONE [Concomitant]
     Route: 065
  5. LASIX [Concomitant]
     Route: 065
  6. SALBUTAMOL [Concomitant]
     Route: 065
  7. RANITIDINE [Concomitant]
     Route: 065
  8. DILAUDID [Concomitant]
     Route: 065
  9. PENTASA [Concomitant]
     Route: 065
  10. REACTINE [Concomitant]
     Route: 065
  11. CLONAZEPAM [Concomitant]
     Route: 065
  12. FAMOTIDINE [Concomitant]
     Route: 065
  13. VITAMIN B 12 [Concomitant]
     Route: 065
  14. DICETEL [Concomitant]
     Route: 065
  15. IMURAN [Concomitant]
     Route: 065
  16. OTHER THERAPEUTICS [Concomitant]
  17. TYLENOL [Concomitant]
     Route: 065

REACTIONS (1)
  - Intestinal resection [Recovering/Resolving]
